FAERS Safety Report 20018451 (Version 1)
Quarter: 2021Q4

REPORT INFORMATION
  Report Type: Report from Study
  Country: CN (occurrence: CN)
  Receive Date: 20211101
  Receipt Date: 20211101
  Transmission Date: 20220303
  Serious: Yes (Other)
  Sender: FDA-Public Use
  Company Number: CN-TAKEDA-2021TUS066055

PATIENT
  Age: 61 Year
  Sex: Male
  Weight: 58 kg

DRUGS (43)
  1. IXAZOMIB [Suspect]
     Active Substance: IXAZOMIB
     Indication: Plasma cell myeloma
     Dosage: 4 MILLIGRAM, 1/WEEK
     Route: 048
     Dates: start: 20210806, end: 20210910
  2. ESOMEPRAZOLE SODIUM [Concomitant]
     Active Substance: ESOMEPRAZOLE SODIUM
     Indication: Prophylaxis
     Dosage: 40 MILLIGRAM
     Route: 042
     Dates: start: 20210825, end: 20210825
  3. ESOMEPRAZOLE SODIUM [Concomitant]
     Active Substance: ESOMEPRAZOLE SODIUM
     Dosage: 40 MILLIGRAM, QD
     Route: 042
     Dates: start: 20210825, end: 20210906
  4. GLUTATHIONE [Concomitant]
     Active Substance: GLUTATHIONE
     Indication: Prophylaxis
     Dosage: 1.8 GRAM
     Route: 042
     Dates: start: 20210825, end: 20210825
  5. GLUTATHIONE [Concomitant]
     Active Substance: GLUTATHIONE
     Dosage: 1.8 GRAM, QD
     Route: 042
     Dates: start: 20210825, end: 20210906
  6. PHOSPHOLIPID [Concomitant]
     Active Substance: PHOSPHOLIPID
     Indication: Prophylaxis
     Dosage: 456 MILLIGRAM, QD
     Route: 048
     Dates: start: 20210825, end: 20210826
  7. PHOSPHOLIPID [Concomitant]
     Active Substance: PHOSPHOLIPID
     Dosage: 20 MILLILITER
     Route: 042
     Dates: start: 20210825, end: 20210825
  8. PHOSPHOLIPID [Concomitant]
     Active Substance: PHOSPHOLIPID
     Dosage: 456 MILLIGRAM, TID
     Route: 048
     Dates: start: 20210826, end: 20210906
  9. AMMONIUM GLYCYRRHIZATE\CYSTEINE [Concomitant]
     Active Substance: AMMONIUM GLYCYRRHIZATE\CYSTEINE
     Indication: Prophylaxis
     Dosage: 250 MILLILITER
     Route: 042
     Dates: start: 20210825, end: 20210825
  10. AMMONIUM GLYCYRRHIZATE\CYSTEINE [Concomitant]
     Active Substance: AMMONIUM GLYCYRRHIZATE\CYSTEINE
     Dosage: 250 MILLILITER
     Route: 042
     Dates: start: 20210826, end: 20210826
  11. AMMONIUM GLYCYRRHIZATE\CYSTEINE [Concomitant]
     Active Substance: AMMONIUM GLYCYRRHIZATE\CYSTEINE
     Dosage: 250 MILLILITER, QD
     Route: 042
     Dates: start: 20210826, end: 20210906
  12. METHYLCOBALAMIN [Concomitant]
     Active Substance: METHYLCOBALAMIN
     Indication: Nerve injury
     Dosage: 1000 MICROGRAM, QD
     Route: 042
     Dates: start: 20210826, end: 20210826
  13. METHYLCOBALAMIN [Concomitant]
     Active Substance: METHYLCOBALAMIN
     Dosage: 1000 MICROGRAM, QD
     Route: 042
     Dates: start: 20210826, end: 20210906
  14. FOLIC ACID [Concomitant]
     Active Substance: FOLIC ACID
     Indication: Vitamin supplementation
     Dosage: 5 MILLIGRAM, TID
     Route: 048
     Dates: start: 20210826, end: 20210906
  15. LENALIDOMIDE [Concomitant]
     Active Substance: LENALIDOMIDE
     Indication: Plasma cell myeloma
     Dosage: 10 MILLIGRAM
     Route: 048
     Dates: start: 20210901, end: 2021
  16. BICYCLOL [Concomitant]
     Active Substance: BICYCLOL
     Indication: Prophylaxis
     Dosage: 50 MILLIGRAM, TID
     Route: 048
     Dates: start: 20210902, end: 20210906
  17. BENZBROMARONE [Concomitant]
     Active Substance: BENZBROMARONE
     Indication: Blood uric acid decreased
     Dosage: 50 MILLIGRAM, QD
     Route: 048
     Dates: start: 20210902, end: 20210906
  18. CLOSTRIDIUM BUTYRICUM SPORES STRAIN M-55 [Concomitant]
     Active Substance: CLOSTRIDIUM BUTYRICUM SPORES STRAIN M-55
     Indication: Prophylaxis
     Dosage: 40 MILLIGRAM, TID
     Route: 048
     Dates: start: 20210902, end: 20210906
  19. ADEMETIONINE BUTANEDISULFONATE [Concomitant]
     Active Substance: ADEMETIONINE BUTANEDISULFONATE
     Indication: Prophylaxis
     Dosage: 0.5 GRAM, TID
     Route: 048
     Dates: start: 20210825, end: 20210826
  20. ADEMETIONINE BUTANEDISULFONATE [Concomitant]
     Active Substance: ADEMETIONINE BUTANEDISULFONATE
     Dosage: 0.5 GRAM, TID
     Route: 048
     Dates: start: 20210902, end: 20210906
  21. CYCLOPHOSPHAMIDE [Concomitant]
     Active Substance: CYCLOPHOSPHAMIDE
     Indication: Plasma cell myeloma
     Dosage: 200 MILLIGRAM
     Route: 042
     Dates: start: 20210902, end: 20210902
  22. CYCLOPHOSPHAMIDE [Concomitant]
     Active Substance: CYCLOPHOSPHAMIDE
     Dosage: 200 MILLIGRAM, QD
     Route: 042
     Dates: start: 20210902, end: 20210905
  23. OXALIPLATIN [Concomitant]
     Active Substance: OXALIPLATIN
     Indication: Plasma cell myeloma
     Dosage: 50 MILLIGRAM
     Route: 042
     Dates: start: 20210902, end: 20210902
  24. OXALIPLATIN [Concomitant]
     Active Substance: OXALIPLATIN
     Dosage: 50 MILLIGRAM, QD
     Route: 042
     Dates: start: 20210902, end: 20210905
  25. DEXAMETHASONE SODIUM PHOSPHATE [Concomitant]
     Active Substance: DEXAMETHASONE SODIUM PHOSPHATE
     Indication: Plasma cell myeloma
     Dosage: 10 MILLIGRAM
     Route: 042
     Dates: start: 20210901, end: 20210901
  26. DEXAMETHASONE SODIUM PHOSPHATE [Concomitant]
     Active Substance: DEXAMETHASONE SODIUM PHOSPHATE
     Dosage: 20 MILLIGRAM
     Route: 042
     Dates: start: 20210902, end: 20210902
  27. DEXAMETHASONE SODIUM PHOSPHATE [Concomitant]
     Active Substance: DEXAMETHASONE SODIUM PHOSPHATE
     Dosage: 20 MILLIGRAM, QD
     Route: 042
     Dates: start: 20210902, end: 20210905
  28. ETOPOSIDE [Concomitant]
     Active Substance: ETOPOSIDE
     Indication: Plasma cell myeloma
     Dosage: 50 MILLIGRAM
     Route: 042
     Dates: start: 20210902, end: 20210902
  29. ETOPOSIDE [Concomitant]
     Active Substance: ETOPOSIDE
     Dosage: 50 MILLIGRAM, QD
     Route: 042
     Dates: start: 20210902, end: 20210905
  30. ONDANSETRON HYDROCHLORIDE [Concomitant]
     Active Substance: ONDANSETRON HYDROCHLORIDE
     Indication: Antiemetic supportive care
     Dosage: 8 MILLIGRAM
     Route: 042
     Dates: start: 20210901, end: 20210901
  31. ONDANSETRON HYDROCHLORIDE [Concomitant]
     Active Substance: ONDANSETRON HYDROCHLORIDE
     Dosage: 8 MILLIGRAM
     Route: 042
     Dates: start: 20210902, end: 20210902
  32. ONDANSETRON HYDROCHLORIDE [Concomitant]
     Active Substance: ONDANSETRON HYDROCHLORIDE
     Dosage: 8 MILLIGRAM, QD
     Route: 042
     Dates: start: 20210902, end: 20210905
  33. FUROSEMIDE [Concomitant]
     Active Substance: FUROSEMIDE
     Indication: Polyuria
     Dosage: 20 MILLIGRAM
     Route: 042
     Dates: start: 20210902, end: 20210902
  34. FUROSEMIDE [Concomitant]
     Active Substance: FUROSEMIDE
     Indication: White blood cell count
     Dosage: 20 MILLIGRAM, QD
     Route: 042
     Dates: start: 20210902, end: 20210905
  35. CEFEPIME HYDROCHLORIDE [Concomitant]
     Active Substance: CEFEPIME HYDROCHLORIDE
     Indication: Infection prophylaxis
     Dosage: 2 GRAM, BID
     Route: 042
     Dates: start: 20210902, end: 20210902
  36. CEFEPIME HYDROCHLORIDE [Concomitant]
     Active Substance: CEFEPIME HYDROCHLORIDE
     Dosage: 2 GRAM, BID
     Route: 042
     Dates: start: 20210903, end: 20210906
  37. Shi yi wei shen qi [Concomitant]
     Indication: White blood cell count
     Dosage: UNK, QD
     Route: 048
     Dates: start: 20210825, end: 20210825
  38. COMPOUND GLYCYRRHIZA [Concomitant]
     Indication: Antiemetic supportive care
     Dosage: 180 MILLILITER, QD
     Route: 048
     Dates: start: 20210826, end: 20210826
  39. PAMIDRONATE DISODIUM [Concomitant]
     Active Substance: PAMIDRONATE DISODIUM
     Indication: Prophylaxis
     Dosage: 60 MILLIGRAM
     Route: 042
     Dates: start: 20210828, end: 20210828
  40. LACTULOSE [Concomitant]
     Active Substance: LACTULOSE
     Indication: Laxative supportive care
     Dosage: 15 MILLILITER
     Route: 048
     Dates: start: 20210902, end: 2021
  41. GLYCERIN [Concomitant]
     Active Substance: GLYCERIN
     Indication: Laxative supportive care
     Dosage: 20 MILLILITER
     Route: 065
     Dates: start: 20210902, end: 2021
  42. RIVAROXABAN [Concomitant]
     Active Substance: RIVAROXABAN
     Indication: Anticoagulant therapy
     Dosage: 10 MILLIGRAM, QD
     Route: 048
     Dates: start: 20210825, end: 20210906
  43. OXYCODONE HYDROCHLORIDE [Concomitant]
     Active Substance: OXYCODONE HYDROCHLORIDE
     Indication: Analgesic therapy
     Dosage: 10 MILLIGRAM
     Route: 048
     Dates: start: 20210828, end: 20210906

REACTIONS (1)
  - Pneumonia [Recovered/Resolved]

NARRATIVE: CASE EVENT DATE: 20210906
